FAERS Safety Report 9671782 (Version 2)
Quarter: 2013Q4

REPORT INFORMATION
  Report Type: Spontaneous
  Country: NO (occurrence: NO)
  Receive Date: 20131106
  Receipt Date: 20131111
  Transmission Date: 20140711
  Serious: Yes (Other)
  Sender: FDA-Public Use
  Company Number: NO-PFIZER INC-2013315841

PATIENT
  Age: 35 Year
  Sex: Male

DRUGS (6)
  1. NEURONTIN [Suspect]
     Dosage: 300 MG, UNK
     Dates: end: 20120228
  2. SOBRIL [Suspect]
     Dosage: 10 MG, UNK
  3. PARALGIN FORTE [Suspect]
     Dosage: 30 MG, UNK
  4. IMOVANE [Suspect]
     Dosage: 7.5 MG, UNK
  5. ALIMEMAZINE [Suspect]
     Dosage: 10 MG, UNK
  6. CIPRALEX [Suspect]
     Dosage: UNK

REACTIONS (10)
  - Epilepsy [Unknown]
  - Drug dependence [Unknown]
  - Malaise [Unknown]
  - Insomnia [Unknown]
  - Fatigue [Unknown]
  - Thinking abnormal [Unknown]
  - Irritability [Unknown]
  - Frustration [Unknown]
  - Crying [Unknown]
  - Feeling of despair [Unknown]
